FAERS Safety Report 8325126-1 (Version None)
Quarter: 2012Q2

REPORT INFORMATION
  Report Type: 
  Country: None (occurrence: None)
  Receive Date: 20120501
  Receipt Date: 20120307
  Transmission Date: 20120825
  Serious: No
  Sender: FDA-Public Use
  Company Number: US-ABBOTT-12P-163-0914610-00

PATIENT
  Sex: Male
  Weight: 103.51 kg

DRUGS (4)
  1. CREON [Suspect]
     Indication: GASTROINTESTINAL DISORDER
     Dosage: 12 PILLS (4 PILLS BEFORE EACH MEAL)
     Route: 048
  2. CREON [Suspect]
     Indication: PANCREATITIS
  3. UNKNOWN DIABETIC MEDICATION [Concomitant]
     Indication: DIABETES MELLITUS
  4. UNKNOWN BLOOD PRESSURE MEDICATION [Concomitant]
     Indication: HYPERTENSION

REACTIONS (1)
  - BLOOD GLUCOSE INCREASED [None]
